FAERS Safety Report 18948185 (Version 2)
Quarter: 2021Q1

REPORT INFORMATION
  Report Type: Spontaneous
  Country: US (occurrence: US)
  Receive Date: 20210226
  Receipt Date: 20210310
  Transmission Date: 20210420
  Serious: Yes (Other)
  Sender: FDA-Public Use
  Company Number: US-BIOGEN-2021BI00982038

PATIENT
  Sex: Female

DRUGS (1)
  1. TECFIDERA [Suspect]
     Active Substance: DIMETHYL FUMARATE
     Indication: MULTIPLE SCLEROSIS
     Route: 065
     Dates: start: 20180905

REACTIONS (5)
  - Blindness unilateral [Unknown]
  - Decreased immune responsiveness [Unknown]
  - Herpes simplex [Not Recovered/Not Resolved]
  - Hypersensitivity [Unknown]
  - Visual impairment [Not Recovered/Not Resolved]
